FAERS Safety Report 4300226-1 (Version None)
Quarter: 2004Q1

REPORT INFORMATION
  Report Type: 
  Country: None (occurrence: None)
  Receive Date: 20040220
  Receipt Date: 20040204
  Transmission Date: 20041129
  Serious: Yes (Other)
  Sender: FDA-Public Use
  Company Number: PHEH2004US01649

PATIENT
  Age: 62 Year
  Sex: Female
  Weight: 113 kg

DRUGS (3)
  1. TRILEPTAL [Suspect]
     Indication: TRIGEMINAL NERVE DISORDER
     Dosage: 600 MG, QD
     Route: 048
     Dates: start: 20030729, end: 20040127
  2. TOPAMAX [Suspect]
     Dosage: 25 MG, QID
     Route: 048
  3. XANAX [Concomitant]

REACTIONS (9)
  - APHASIA [None]
  - CHEST PAIN [None]
  - CONVULSION [None]
  - DIFFICULTY IN WALKING [None]
  - DROOLING [None]
  - DYSKINESIA [None]
  - ELECTROCARDIOGRAM ABNORMAL [None]
  - HEAD INJURY [None]
  - HEADACHE [None]
